FAERS Safety Report 13580511 (Version 3)
Quarter: 2017Q3

REPORT INFORMATION
  Report Type: Report from Study
  Country: US (occurrence: US)
  Receive Date: 20170525
  Receipt Date: 20170711
  Transmission Date: 20171127
  Serious: Yes (Other)
  Sender: FDA-Public Use
  Company Number: US-AMGEN-USASL2017077013

PATIENT
  Age: 38 Year
  Sex: Female

DRUGS (5)
  1. ENBREL [Suspect]
     Active Substance: ETANERCEPT
     Indication: SARCOIDOSIS
  2. ENBREL [Suspect]
     Active Substance: ETANERCEPT
     Indication: PANNICULITIS
     Dosage: 50 MG, 2 TIMES/WK
     Route: 065
     Dates: start: 20070104
  3. ENBREL [Suspect]
     Active Substance: ETANERCEPT
     Indication: ERYTHEMA NODOSUM
  4. ENBREL [Suspect]
     Active Substance: ETANERCEPT
     Indication: SYSTEMIC LUPUS ERYTHEMATOSUS
  5. PREDNISONE. [Concomitant]
     Active Substance: PREDNISONE
     Dosage: UNK

REACTIONS (6)
  - Off label use [Unknown]
  - Drug dose omission [Unknown]
  - Respiration abnormal [Unknown]
  - Pain [Unknown]
  - Red blood cell sedimentation rate abnormal [Unknown]
  - Nodule [Unknown]

NARRATIVE: CASE EVENT DATE: 20070104
